FAERS Safety Report 5711064-7 (Version None)
Quarter: 2008Q2

REPORT INFORMATION
  Report Type: 
  Country: None (occurrence: None)
  Receive Date: 20080421
  Receipt Date: 20080407
  Transmission Date: 20081010
  Serious: Yes (Death)
  Sender: FDA-Public Use
  Company Number: GR-AMGEN-UK273856

PATIENT
  Sex: Female
  Weight: 78 kg

DRUGS (3)
  1. NEULASTA [Suspect]
     Indication: NON-HODGKIN'S LYMPHOMA
     Route: 058
     Dates: start: 20071208, end: 20071208
  2. CEFTAZIDIME [Concomitant]
     Route: 042
  3. AMIKACIN [Concomitant]
     Route: 042
     Dates: start: 20071216, end: 20071228

REACTIONS (1)
  - DISEASE PROGRESSION [None]
